FAERS Safety Report 14639994 (Version 3)
Quarter: 2018Q2

REPORT INFORMATION
  Report Type: Spontaneous
  Country: US (occurrence: US)
  Receive Date: 20180315
  Receipt Date: 20180614
  Transmission Date: 20180711
  Serious: Yes (Hospitalization)
  Sender: FDA-Public Use
  Company Number: US-ACTELION-A-NJ2018-169139

PATIENT
  Age: 52 Year
  Sex: Female
  Weight: 79.37 kg

DRUGS (3)
  1. TRACLEER [Suspect]
     Active Substance: BOSENTAN
     Indication: PULMONARY HYPERTENSION
     Dosage: 125 MG, BID
     Route: 048
  2. ADCIRCA [Concomitant]
     Active Substance: TADALAFIL
  3. WARFARIN [Concomitant]
     Active Substance: WARFARIN

REACTIONS (7)
  - Contusion [Unknown]
  - Dizziness [Unknown]
  - Oxygen saturation decreased [Unknown]
  - Cough [Unknown]
  - Seasonal allergy [Unknown]
  - Pneumonia [Unknown]
  - Influenza [Unknown]
